FAERS Safety Report 5381938-8 (Version None)
Quarter: 2007Q3

REPORT INFORMATION
  Report Type: 
  Country: None (occurrence: None)
  Receive Date: 20070709
  Receipt Date: 20070628
  Transmission Date: 20080115
  Serious: Yes (Other)
  Sender: FDA-Public Use
  Company Number: CA-JNJFOC-20070606827

PATIENT
  Sex: Female
  Weight: 99.2 kg

DRUGS (1)
  1. REMICADE [Suspect]
     Indication: RHEUMATOID ARTHRITIS
     Dosage: THIS IS THE FIRST 400 MG DOSE. DOSE WAS 300 MG. 8 TOTAL DOSES
     Route: 042

REACTIONS (1)
  - DERMAL CYST [None]
